FAERS Safety Report 9222568 (Version 4)
Quarter: 2013Q2

REPORT INFORMATION
  Report Type: Report from Study
  Country: US (occurrence: US)
  Receive Date: 20130410
  Receipt Date: 20130626
  Transmission Date: 20140414
  Serious: Yes (Hospitalization)
  Sender: FDA-Public Use
  Company Number: US-ACTELION-A-NJ2013-81656

PATIENT
  Age: 61 Year
  Sex: Female

DRUGS (3)
  1. TRACLEER [Suspect]
     Indication: PULMONARY ARTERIAL HYPERTENSION
     Dosage: UNK
     Route: 048
  2. TRACLEER [Suspect]
     Dosage: 125 MG 1/2 TAB, BID
     Route: 048
  3. ADCIRCA [Concomitant]

REACTIONS (5)
  - Atrial flutter [Unknown]
  - Cardiac pacemaker insertion [Unknown]
  - Oedema [Unknown]
  - Atrial fibrillation [Unknown]
  - Dyspnoea [Unknown]
